FAERS Safety Report 7248687-2 (Version None)
Quarter: 2011Q1

REPORT INFORMATION
  Report Type: 
  Country: None (occurrence: None)
  Receive Date: 20110128
  Receipt Date: 20110121
  Transmission Date: 20110831
  Serious: Yes (Other)
  Sender: FDA-Public Use
  Company Number: US-BIOGENIDEC-2010BI035246

PATIENT
  Sex: Male

DRUGS (2)
  1. COUMADIN [Concomitant]
  2. AVONEX [Suspect]
     Indication: MULTIPLE SCLEROSIS
     Route: 030
     Dates: end: 20090101

REACTIONS (3)
  - PANCREATITIS [None]
  - CHOLELITHIASIS OBSTRUCTIVE [None]
  - CHOLECYSTITIS INFECTIVE [None]
